FAERS Safety Report 13751997 (Version 2)
Quarter: 2017Q3

REPORT INFORMATION
  Report Type: Spontaneous
  Country: US (occurrence: US)
  Receive Date: 20170713
  Receipt Date: 20170802
  Transmission Date: 20171127
  Serious: Yes (Other)
  Sender: FDA-Public Use
  Company Number: US-PFIZER INC-2017296627

PATIENT
  Age: 49 Year
  Sex: Female

DRUGS (1)
  1. XELJANZ XR [Suspect]
     Active Substance: TOFACITINIB CITRATE
     Indication: RHEUMATOID ARTHRITIS
     Dosage: 11 MG, UNK

REACTIONS (22)
  - Leukopenia [Unknown]
  - Nodule [Unknown]
  - Musculoskeletal stiffness [Unknown]
  - Headache [Unknown]
  - Limb discomfort [Unknown]
  - Peripheral swelling [Unknown]
  - Foot deformity [Unknown]
  - Feeling abnormal [Unknown]
  - Fatigue [Unknown]
  - Dry mouth [Unknown]
  - Swelling [Unknown]
  - Musculoskeletal pain [Unknown]
  - Joint crepitation [Unknown]
  - Erythema [Unknown]
  - Dyspnoea [Unknown]
  - Deafness [Unknown]
  - Pain in extremity [Unknown]
  - Alopecia [Unknown]
  - Arthralgia [Unknown]
  - Sinusitis [Unknown]
  - Anxiety [Unknown]
  - Soft tissue swelling [Unknown]
